FAERS Safety Report 6822550-0 (Version None)
Quarter: 2010Q3

REPORT INFORMATION
  Report Type: 
  Country: None (occurrence: None)
  Receive Date: 20100708
  Receipt Date: 20100629
  Transmission Date: 20110219
  Serious: Yes (Other)
  Sender: FDA-Public Use
  Company Number: US-NOVOPROD-310903

PATIENT
  Sex: Female
  Weight: 87.528 kg

DRUGS (9)
  1. VICTOZA [Suspect]
     Indication: TYPE 2 DIABETES MELLITUS
     Dosage: 0.6 MG, BID
     Route: 058
     Dates: start: 20100101, end: 20100101
  2. VICTOZA [Suspect]
     Indication: OFF LABEL USE
     Dosage: 0.6 MG, QD
     Route: 058
     Dates: start: 20100621
  3. VICTOZA [Suspect]
     Indication: WEIGHT DECREASED
  4. JANUVIA [Concomitant]
     Indication: TYPE 2 DIABETES MELLITUS
     Dosage: UNK
     Route: 048
  5. WELLBUTRIN [Concomitant]
     Indication: NEUROPATHY PERIPHERAL
     Dosage: UNK
     Route: 048
  6. ACIPHEX [Concomitant]
     Indication: GASTROOESOPHAGEAL REFLUX DISEASE
     Dosage: UNK
     Route: 048
  7. LISINOPRIL                         /00894002/ [Concomitant]
     Indication: HYPERTENSION
     Dosage: UNK
     Route: 048
  8. SINGULAIR [Concomitant]
     Indication: MULTIPLE ALLERGIES
     Dosage: UNK
     Route: 048
  9. LIPOIC ACID [Concomitant]
     Indication: DIABETIC NEUROPATHY
     Dosage: UNK
     Route: 048

REACTIONS (8)
  - ABDOMINAL PAIN UPPER [None]
  - ERUCTATION [None]
  - FLATULENCE [None]
  - HEADACHE [None]
  - INJECTION SITE RASH [None]
  - NAUSEA [None]
  - PANCREATIC CYST [None]
  - WEIGHT DECREASED [None]
